FAERS Safety Report 20754730 (Version 11)
Quarter: 2023Q2

REPORT INFORMATION
  Report Type: Report from Study
  Country: JP (occurrence: JP)
  Receive Date: 20220427
  Receipt Date: 20230511
  Transmission Date: 20230721
  Serious: Yes (Other)
  Sender: FDA-Public Use
  Company Number: JP-NOVARTISPH-NVSJ2022JP089169

PATIENT
  Age: 59 Year
  Sex: Female
  Weight: 47.5 kg

DRUGS (31)
  1. MAYZENT [Suspect]
     Active Substance: SIPONIMOD
     Indication: Secondary progressive multiple sclerosis
     Dosage: UNK
     Route: 048
     Dates: start: 20210331
  2. MAYZENT [Suspect]
     Active Substance: SIPONIMOD
     Dosage: 2 MG, QD
     Route: 048
     Dates: start: 20210428, end: 20210701
  3. MAYZENT [Suspect]
     Active Substance: SIPONIMOD
     Dosage: 1 MG, QD
     Route: 048
     Dates: start: 20210702, end: 20210726
  4. MAYZENT [Suspect]
     Active Substance: SIPONIMOD
     Dosage: 0.25 MG
     Route: 048
     Dates: start: 20210922, end: 20210923
  5. MAYZENT [Suspect]
     Active Substance: SIPONIMOD
     Dosage: 0.5 MG
     Route: 048
     Dates: start: 20210924, end: 20210924
  6. MAYZENT [Suspect]
     Active Substance: SIPONIMOD
     Dosage: 0.75 MG
     Route: 048
     Dates: start: 20210925, end: 20210925
  7. MAYZENT [Suspect]
     Active Substance: SIPONIMOD
     Dosage: 1.25 MG
     Route: 048
     Dates: start: 20210926, end: 20210926
  8. MAYZENT [Suspect]
     Active Substance: SIPONIMOD
     Dosage: 2 MG
     Route: 048
     Dates: start: 20210927, end: 20220412
  9. MAYZENT [Suspect]
     Active Substance: SIPONIMOD
     Dosage: 0.25 MG
     Route: 048
     Dates: start: 20220519, end: 20220520
  10. MAYZENT [Suspect]
     Active Substance: SIPONIMOD
     Dosage: 0.5 MG
     Route: 048
     Dates: start: 20220521, end: 20220521
  11. MAYZENT [Suspect]
     Active Substance: SIPONIMOD
     Dosage: 0.75 MG
     Route: 048
     Dates: start: 20220522, end: 20220522
  12. MAYZENT [Suspect]
     Active Substance: SIPONIMOD
     Dosage: 1.25 MG
     Route: 048
     Dates: start: 20220523, end: 20220523
  13. MAYZENT [Suspect]
     Active Substance: SIPONIMOD
     Dosage: 2 MG
     Route: 048
     Dates: start: 20220524, end: 20221114
  14. MAYZENT [Suspect]
     Active Substance: SIPONIMOD
     Dosage: 0.25 MG
     Route: 048
     Dates: start: 20230105, end: 20230106
  15. MAYZENT [Suspect]
     Active Substance: SIPONIMOD
     Dosage: 0.5 MG
     Route: 048
     Dates: start: 20230107, end: 20230107
  16. MAYZENT [Suspect]
     Active Substance: SIPONIMOD
     Dosage: 0.75 MG
     Route: 048
     Dates: start: 20230108, end: 20230108
  17. MAYZENT [Suspect]
     Active Substance: SIPONIMOD
     Dosage: 1.25 MG
     Route: 048
     Dates: start: 20230109, end: 20230109
  18. MAYZENT [Suspect]
     Active Substance: SIPONIMOD
     Dosage: 2 MG
     Route: 048
     Dates: start: 20230110, end: 20230219
  19. MAYZENT [Suspect]
     Active Substance: SIPONIMOD
     Dosage: 0.25 MG
     Route: 048
     Dates: start: 20230329, end: 20230330
  20. MAYZENT [Suspect]
     Active Substance: SIPONIMOD
     Dosage: 0.5 MG
     Route: 048
     Dates: start: 20230331, end: 20230331
  21. MAYZENT [Suspect]
     Active Substance: SIPONIMOD
     Dosage: 0.75 MG
     Route: 048
     Dates: start: 20230401, end: 20230401
  22. MAYZENT [Suspect]
     Active Substance: SIPONIMOD
     Dosage: 1.25 MG
     Route: 048
     Dates: start: 20230402, end: 20230402
  23. MAYZENT [Suspect]
     Active Substance: SIPONIMOD
     Dosage: 2 MG
     Route: 048
     Dates: start: 20230403
  24. NEXIUM [Concomitant]
     Active Substance: ESOMEPRAZOLE MAGNESIUM
     Indication: Product used for unknown indication
     Dosage: UNK
     Route: 065
  25. NIFEDIPINE [Concomitant]
     Active Substance: NIFEDIPINE
     Indication: Product used for unknown indication
     Dosage: UNK
     Route: 065
  26. FLUNITRAZEPAM [Concomitant]
     Active Substance: FLUNITRAZEPAM
     Indication: Product used for unknown indication
     Dosage: UNK
     Route: 048
  27. LYRICA [Concomitant]
     Active Substance: PREGABALIN
     Indication: Product used for unknown indication
     Dosage: UNK
     Route: 065
  28. SODIUM FERROUS CITRATE [Concomitant]
     Active Substance: SODIUM FERROUS CITRATE
     Indication: Product used for unknown indication
     Dosage: UNK
     Route: 048
  29. OLMESARTAN [Concomitant]
     Active Substance: OLMESARTAN
     Indication: Product used for unknown indication
     Dosage: UNK
     Route: 048
  30. SENNOSIDES [Concomitant]
     Active Substance: SENNOSIDES
     Indication: Product used for unknown indication
     Dosage: UNK
     Route: 048
  31. BISACODYL [Concomitant]
     Active Substance: BISACODYL
     Indication: Product used for unknown indication
     Dosage: UNK
     Route: 054

REACTIONS (9)
  - Lymphocyte count decreased [Not Recovered/Not Resolved]
  - Concomitant disease aggravated [Not Recovered/Not Resolved]
  - White blood cell count decreased [Recovered/Resolved]
  - Hypertension [Recovered/Resolved]
  - Hepatic function abnormal [Recovered/Resolved]
  - White blood cell count decreased [Recovered/Resolved]
  - Bradycardia [Recovered/Resolved]
  - Coronavirus infection [Recovered/Resolved]
  - Pyrexia [Recovered/Resolved]

NARRATIVE: CASE EVENT DATE: 20210428
